FAERS Safety Report 7864868 (Version 2)
Quarter: 2012Q4

REPORT INFORMATION
  Report Type: 
  Country: FR (occurrence: FR)
  Receive Date: 20110321
  Receipt Date: 20120910
  Transmission Date: 20130627
  Serious: Yes (Life-Threatening)
  Sender: FDA-Public Use
  Company Number: FR-ASTRAZENECA-2011SE14683

PATIENT
  Age: 68 Year
  Sex: Female

DRUGS (8)
  1. DIPRIVAN [Suspect]
     Indication: INDUCTION OF ANAESTHESIA
     Route: 042
     Dates: start: 20110124, end: 20110124
  2. CELOCURINE [Suspect]
     Indication: INDUCTION OF ANAESTHESIA
     Route: 042
     Dates: start: 20110124, end: 20110124
  3. SUFENTANIL [Suspect]
     Indication: INDUCTION OF ANAESTHESIA
     Route: 042
     Dates: start: 20110124, end: 20110124
  4. NIMBEX [Suspect]
     Indication: INDUCTION OF ANAESTHESIA
     Route: 042
     Dates: start: 20110124, end: 20110124
  5. KARDEGIC [Concomitant]
  6. PRAVASTATIN [Concomitant]
  7. ZOLPIDEM [Concomitant]
  8. SINGULAIR [Concomitant]

REACTIONS (5)
  - Shock [Recovered/Resolved]
  - Circulatory collapse [Recovered/Resolved]
  - Bronchospasm [Recovered/Resolved]
  - Rash [Recovered/Resolved]
  - Generalised oedema [Unknown]
